FAERS Safety Report 6036352-9 (Version None)
Quarter: 2009Q1

REPORT INFORMATION
  Report Type: 
  Country: None (occurrence: None)
  Receive Date: 20090113
  Receipt Date: 20081229
  Transmission Date: 20090719
  Serious: Yes (Other)
  Sender: FDA-Public Use
  Company Number: US-GENENTECH-275350

PATIENT
  Age: 43 Year
  Sex: Female

DRUGS (5)
  1. RITUXAN [Suspect]
     Indication: SYSTEMIC LUPUS ERYTHEMATOSUS
     Dosage: 375 MG/M2, 1/WEEK
     Route: 042
  2. DIPHENHYDRAMINE HCL [Concomitant]
     Indication: PREMEDICATION
     Dosage: 50 MG, UNK
     Route: 048
  3. ACETAMINOPHEN [Concomitant]
     Indication: PREMEDICATION
     Dosage: 650 MG, UNK
     Route: 048
  4. METHYLPREDNISOLONE 16MG TAB [Concomitant]
     Indication: PREMEDICATION
     Dosage: 100 MG, UNK
     Route: 042
  5. PREDNISONE TAB [Concomitant]
     Indication: PREMEDICATION
     Dosage: 20 MG, UNK

REACTIONS (2)
  - LUPUS ENCEPHALITIS [None]
  - MENINGITIS [None]
